FAERS Safety Report 7954634-8 (Version None)
Quarter: 2011Q4

REPORT INFORMATION
  Report Type: 
  Country: None (occurrence: None)
  Receive Date: 20111202
  Receipt Date: 20111128
  Transmission Date: 20120403
  Serious: Yes (Other)
  Sender: FDA-Public Use
  Company Number: PHEH2011US010283

PATIENT
  Sex: Female

DRUGS (1)
  1. RECLAST [Suspect]
     Route: 042
     Dates: start: 20111021

REACTIONS (11)
  - MUSCLE SPASMS [None]
  - TOOTHACHE [None]
  - CROHN'S DISEASE [None]
  - BLOOD CALCIUM INCREASED [None]
  - DYSPHONIA [None]
  - OSTEITIS [None]
  - NAIL INFECTION [None]
  - PAIN [None]
  - INFLUENZA LIKE ILLNESS [None]
  - ARTHRALGIA [None]
  - GAIT DISTURBANCE [None]
